FAERS Safety Report 4798234-X (Version None)
Quarter: 2005Q4

REPORT INFORMATION
  Report Type: 
  Country: None (occurrence: None)
  Receive Date: 20051011
  Receipt Date: 20051011
  Transmission Date: 20060501
  Serious: No
  Sender: FDA-Public Use
  Company Number: None

PATIENT
  Sex: Male
  Weight: 99.7913 kg

DRUGS (2)
  1. WELLBUTRIN SR [Suspect]
     Indication: MAJOR DEPRESSION
     Dosage: 100 MG ONE BID
  2. PROZAC [Suspect]
     Indication: MAJOR DEPRESSION
     Dosage: 10 MG , TWO Q AM , ONE Q NOON

REACTIONS (8)
  - AGGRESSION [None]
  - ATTENTION-SEEKING BEHAVIOUR [None]
  - CONDITION AGGRAVATED [None]
  - DEPRESSION [None]
  - DRUG INEFFECTIVE [None]
  - HALLUCINATION, AUDITORY [None]
  - IMPAIRED SELF-CARE [None]
  - VERBAL ABUSE [None]
